FAERS Safety Report 9691678 (Version 1)
Quarter: 2013Q4

REPORT INFORMATION
  Report Type: Spontaneous
  Country: US (occurrence: US)
  Receive Date: 20131115
  Receipt Date: 20131115
  Transmission Date: 20140711
  Serious: Yes (Other)
  Sender: FDA-Public Use
  Company Number: US-TEVA-444035USA

PATIENT
  Age: 29 Year
  Sex: Female
  Weight: 70.37 kg

DRUGS (1)
  1. PARAGARD 380A [Suspect]
     Indication: CONTRACEPTION
     Route: 015
     Dates: start: 201303, end: 20131107

REACTIONS (4)
  - Haemorrhage [Not Recovered/Not Resolved]
  - Embedded device [Unknown]
  - Abdominal pain [Recovered/Resolved]
  - Device breakage [Unknown]
